FAERS Safety Report 7151611-4 (Version None)
Quarter: 2010Q4

REPORT INFORMATION
  Report Type: 
  Country: None (occurrence: None)
  Receive Date: 20101210
  Receipt Date: 20101202
  Transmission Date: 20110411
  Serious: Yes (Other)
  Sender: FDA-Public Use
  Company Number: US-JNJFOC-20100301494

PATIENT
  Sex: Male
  Weight: 81.65 kg

DRUGS (3)
  1. REMICADE [Suspect]
     Indication: ANKYLOSING SPONDYLITIS
     Route: 042
  2. PREDNISONE [Concomitant]
     Indication: ANKYLOSING SPONDYLITIS
  3. SOLU-MEDROL [Concomitant]
     Indication: PREMEDICATION

REACTIONS (3)
  - INFUSION RELATED REACTION [None]
  - METASTASES TO BONE [None]
  - PROSTATE CANCER [None]
